FAERS Safety Report 18419718 (Version 1)
Quarter: 2020Q4

REPORT INFORMATION
  Report Type: Spontaneous
  Country: US (occurrence: US)
  Receive Date: 20201023
  Receipt Date: 20201023
  Transmission Date: 20210114
  Serious: No
  Sender: FDA-Public Use
  Company Number: None

PATIENT
  Age: 25 Year
  Sex: Female
  Weight: 54.9 kg

DRUGS (1)
  1. FERRLECIT [Suspect]
     Active Substance: SODIUM FERRIC GLUCONATE COMPLEX
     Dosage: ?          OTHER FREQUENCY:ONCE A WEEK;?
     Route: 042

REACTIONS (5)
  - Abdominal pain [None]
  - Respiration abnormal [None]
  - Nausea [None]
  - Pain [None]
  - Back pain [None]

NARRATIVE: CASE EVENT DATE: 20201020
